FAERS Safety Report 25526637 (Version 2)
Quarter: 2025Q3

REPORT INFORMATION
  Report Type: Spontaneous
  Country: TW (occurrence: TW)
  Receive Date: 20250707
  Receipt Date: 20250714
  Transmission Date: 20251021
  Serious: Yes (Hospitalization, Other)
  Sender: PFIZER
  Company Number: TW-PFIZER INC-PV202500079049

PATIENT
  Age: 20 Year
  Sex: Male
  Weight: 111.3 kg

DRUGS (19)
  1. VINCRISTINE SULFATE [Suspect]
     Active Substance: VINCRISTINE SULFATE
     Indication: Primary mediastinal large B-cell lymphoma
     Dosage: 0.8 MG, QD
     Route: 041
     Dates: start: 20250311, end: 20250318
  2. VINCRISTINE SULFATE [Suspect]
     Active Substance: VINCRISTINE SULFATE
     Dosage: 0.8 MG, QD
     Route: 041
     Dates: start: 20250408, end: 20250414
  3. VINCRISTINE SULFATE [Suspect]
     Active Substance: VINCRISTINE SULFATE
     Dosage: 0.8 MG, 1X/DAY (LEVEL 2 DOSE)
     Route: 041
     Dates: start: 20250507
  4. ADRIAMYCIN [Suspect]
     Active Substance: DOXORUBICIN HYDROCHLORIDE
     Indication: Primary mediastinal large B-cell lymphoma
     Dosage: 20 MG, QD
     Route: 041
     Dates: start: 20250311, end: 20250318
  5. ADRIAMYCIN [Suspect]
     Active Substance: DOXORUBICIN HYDROCHLORIDE
     Dosage: 20 MG, QD
     Route: 041
     Dates: start: 20250408, end: 20250414
  6. ADRIAMYCIN [Suspect]
     Active Substance: DOXORUBICIN HYDROCHLORIDE
     Dosage: 25.0 MG, OD (LEVEL 2 DOSE)
     Route: 041
     Dates: start: 20250507
  7. MABTHERA [Suspect]
     Active Substance: RITUXIMAB
     Indication: Primary mediastinal large B-cell lymphoma
     Route: 041
     Dates: start: 20250311, end: 20250318
  8. MABTHERA [Suspect]
     Active Substance: RITUXIMAB
     Route: 041
     Dates: start: 20250408, end: 20250414
  9. MABTHERA [Suspect]
     Active Substance: RITUXIMAB
     Route: 041
     Dates: start: 20250506
  10. ETOPOSIDE [Suspect]
     Active Substance: ETOPOSIDE
     Indication: Primary mediastinal large B-cell lymphoma
     Dosage: 100 MG, QD
     Route: 041
     Dates: start: 20250311, end: 20250318
  11. ETOPOSIDE [Suspect]
     Active Substance: ETOPOSIDE
     Dosage: 100 MG, QD
     Route: 041
     Dates: start: 20250408, end: 20250414
  12. ETOPOSIDE [Suspect]
     Active Substance: ETOPOSIDE
     Dosage: 127 MG, 1X/DAY (LEVEL 2 DOSE)
     Route: 041
     Dates: start: 20250507
  13. CYCLOPHOSPHAMIDE [Suspect]
     Active Substance: CYCLOPHOSPHAMIDE
     Indication: Primary mediastinal large B-cell lymphoma
     Route: 041
     Dates: start: 20250311, end: 20250318
  14. CYCLOPHOSPHAMIDE [Suspect]
     Active Substance: CYCLOPHOSPHAMIDE
     Route: 041
     Dates: start: 20250408, end: 20250414
  15. CYCLOPHOSPHAMIDE [Suspect]
     Active Substance: CYCLOPHOSPHAMIDE
     Route: 041
     Dates: start: 20250512
  16. MEDASON [Concomitant]
     Indication: Primary mediastinal large B-cell lymphoma
     Dosage: 40.0 MG, Q8H
     Route: 041
     Dates: start: 20250313
  17. SULFAMETHOXAZOLE AND TRIMETHOPRIM [Concomitant]
     Active Substance: SULFAMETHOXAZOLE\TRIMETHOPRIM
     Indication: Infection prophylaxis
     Dosage: 1 DF, 2X/DAY
     Route: 048
     Dates: start: 20250307
  18. VALTREX [Concomitant]
     Active Substance: VALACYCLOVIR HYDROCHLORIDE
     Indication: Infection prophylaxis
     Dosage: 500 MG, 2X/DAY
     Route: 048
     Dates: start: 20250307
  19. NORVASC [Concomitant]
     Active Substance: AMLODIPINE BESYLATE
     Indication: Hypertension
     Dosage: 5 MG, 1X/DAY
     Route: 048

REACTIONS (6)
  - White blood cell count decreased [Recovered/Resolved]
  - Neutropenia [Recovered/Resolved]
  - Pyrexia [Recovered/Resolved]
  - Cough [Recovered/Resolved]
  - Oropharyngeal pain [Recovered/Resolved]
  - Rhinorrhoea [Recovered/Resolved]

NARRATIVE: CASE EVENT DATE: 20250327
